FAERS Safety Report 8341802 (Version 2)
Quarter: 2013Q2

REPORT INFORMATION
  Report Type: Spontaneous
  Country: US (occurrence: None)
  Receive Date: 20111202
  Receipt Date: 20121203
  Transmission Date: 20140414
  Serious: Yes (Other)
  Sender: FDA-Public Use
  Company Number: 2011SP031111

PATIENT
  Age: 36 Year
  Sex: Female
  Weight: 65.8 kg

DRUGS (1)
  1. NUVARING [Suspect]
     Indication: CONTRACEPTION
     Dates: start: 200903, end: 20090801

REACTIONS (5)
  - PULMONARY EMBOLISM [None]
  - Pneumonia [None]
  - Influenza [None]
  - Bronchitis [None]
  - Sinusitis [None]
